FAERS Safety Report 23725929 (Version 1)
Quarter: 2024Q2

REPORT INFORMATION
  Report Type: Spontaneous
  Country: FR (occurrence: FR)
  Receive Date: 20240410
  Receipt Date: 20240410
  Transmission Date: 20240716
  Serious: Yes (Hospitalization)
  Sender: FDA-Public Use
  Company Number: FR-CELLTRION INC.-2024FR008220

PATIENT

DRUGS (3)
  1. RITUXIMAB [Suspect]
     Active Substance: RITUXIMAB
     Indication: Chronic lymphocytic leukaemia
     Dosage: 690 MG, EVERY 1 CYCLE
     Route: 042
     Dates: start: 20201229
  2. BENDAMUSTINE [Suspect]
     Active Substance: BENDAMUSTINE
     Indication: Chronic lymphocytic leukaemia
     Dosage: 90 MG, EVERY 1 CYCLE
     Route: 042
     Dates: start: 20201117
  3. BACTRIM [Concomitant]
     Active Substance: SULFAMETHOXAZOLE\TRIMETHOPRIM
     Dosage: 3 DF, EVERY 1 WEEK
     Route: 048
     Dates: start: 20201106

REACTIONS (4)
  - Purpura [Recovering/Resolving]
  - Rash maculo-papular [Recovering/Resolving]
  - Oedema peripheral [Recovering/Resolving]
  - Oedema peripheral [Recovering/Resolving]

NARRATIVE: CASE EVENT DATE: 20201201
